FAERS Safety Report 6265236-6 (Version None)
Quarter: 2009Q3

REPORT INFORMATION
  Report Type: 
  Country: None (occurrence: None)
  Receive Date: 20090709
  Receipt Date: 20090709
  Transmission Date: 20100115
  Serious: Yes (Hospitalization)
  Sender: FDA-Public Use
  Company Number: None

PATIENT
  Sex: Female
  Weight: 62 kg

DRUGS (1)
  1. CISPLATIN [Suspect]
     Dosage: 66 MG

REACTIONS (3)
  - DEHYDRATION [None]
  - HYPOPHAGIA [None]
  - SYNCOPE [None]
